FAERS Safety Report 7619841-2 (Version None)
Quarter: 2011Q3

REPORT INFORMATION
  Report Type: 
  Country: None (occurrence: None)
  Receive Date: 20110719
  Receipt Date: 20110715
  Transmission Date: 20111222
  Serious: Yes (Hospitalization, Other)
  Sender: FDA-Public Use
  Company Number: US-AMGEN INC.-QUU444604

PATIENT
  Age: 55 Year
  Sex: Male
  Weight: 82 kg

DRUGS (10)
  1. EPOGEN [Suspect]
     Dates: start: 20080101, end: 20100915
  2. LISINOPRIL [Concomitant]
     Dosage: UNK
     Dates: start: 20091228
  3. EPOGEN [Suspect]
     Indication: RENAL FAILURE CHRONIC
     Dosage: UNK UNK, QWK
     Route: 058
     Dates: start: 20081216, end: 20100908
  4. AMLODIPINE [Concomitant]
     Dosage: UNK
     Dates: start: 20100319
  5. CALCIUM ACETATE [Concomitant]
     Dosage: UNK
     Dates: start: 20091102
  6. DIALYVITE 3000 [Concomitant]
     Dosage: UNK
     Dates: start: 20081117
  7. CALCIUM CARBONATE [Concomitant]
     Dosage: UNK
     Dates: start: 20081203
  8. OMEPRAZOLE [Concomitant]
     Dosage: UNK
     Dates: start: 20100719
  9. EPOGEN [Suspect]
     Dates: start: 20080101, end: 20100915
  10. EPOGEN [Suspect]
     Dates: start: 20080101, end: 20100915

REACTIONS (4)
  - APLASIA PURE RED CELL [None]
  - ANTI-ERYTHROPOIETIN ANTIBODY POSITIVE [None]
  - ANAEMIA [None]
  - THERAPEUTIC RESPONSE DECREASED [None]
